FAERS Safety Report 13140456 (Version 8)
Quarter: 2020Q3

REPORT INFORMATION
  Report Type: Report from Study
  Country: DE (occurrence: DE)
  Receive Date: 20170123
  Receipt Date: 20170406
  Transmission Date: 20201105
  Serious: Yes (Hospitalization)
  Sender: FDA-Public Use
  Company Number: DE-JNJFOC-20170110621

PATIENT
  Age: 62 Year
  Sex: Female
  Weight: 70 kg

DRUGS (18)
  1. FOLIC ACID. [Concomitant]
     Active Substance: FOLIC ACID
     Indication: ANAEMIA
     Route: 048
     Dates: start: 201205
  2. TILIDINE [Concomitant]
     Active Substance: TILIDINE
     Route: 048
     Dates: start: 20140906
  3. IBUPROFEN. [Concomitant]
     Active Substance: IBUPROFEN
     Route: 065
  4. NOVALGIN (METAMIZOLE SODIUM) [Concomitant]
     Active Substance: METAMIZOLE SODIUM
     Indication: ARTHRALGIA
     Route: 048
     Dates: start: 20120904
  5. MEZAVANT [Concomitant]
     Active Substance: MESALAMINE
     Indication: DIVERTICULITIS
     Route: 048
     Dates: start: 20160412
  6. USTEKINUMAB [Suspect]
     Active Substance: USTEKINUMAB
     Indication: CROHN^S DISEASE
     Route: 058
     Dates: start: 20130122
  7. AZATHIOPRINE. [Concomitant]
     Active Substance: AZATHIOPRINE
     Indication: CROHN^S DISEASE
     Route: 048
     Dates: start: 201101
  8. AMITRIPTYLIN [Concomitant]
     Active Substance: AMITRIPTYLINE
     Indication: MUSCULOSKELETAL PAIN
     Route: 048
  9. XALACOM [Concomitant]
     Active Substance: LATANOPROST\TIMOLOL MALEATE
     Route: 047
     Dates: start: 20160531
  10. CELEBREX [Concomitant]
     Active Substance: CELECOXIB
     Indication: ARTHRALGIA
     Route: 048
     Dates: start: 20130915
  11. VALDOXAN [Concomitant]
     Active Substance: AGOMELATINE
     Route: 048
     Dates: start: 20140405
  12. PANTOPRAZOLE [Concomitant]
     Active Substance: PANTOPRAZOLE
     Route: 065
  13. DIOVAN [Concomitant]
     Active Substance: VALSARTAN
     Route: 065
  14. CODIOVAN [Concomitant]
     Active Substance: HYDROCHLOROTHIAZIDE\VALSARTAN
     Indication: HYPERTENSION
     Route: 048
     Dates: start: 197508
  15. USTEKINUMAB [Suspect]
     Active Substance: USTEKINUMAB
     Route: 058
  16. HCT [Concomitant]
     Active Substance: HYDROCHLOROTHIAZIDE
     Route: 065
  17. BUSCOPAN [Concomitant]
     Active Substance: BUTYLSCOPOLAMINE BROMIDE
     Indication: ABDOMINAL PAIN
     Route: 048
     Dates: start: 20140702
  18. OMEPRAZOLE. [Concomitant]
     Active Substance: OMEPRAZOLE
     Indication: GASTRITIS
     Route: 048
     Dates: start: 200610

REACTIONS (1)
  - Gastroenteritis [Recovered/Resolved]

NARRATIVE: CASE EVENT DATE: 20161229
